FAERS Safety Report 24962147 (Version 2)
Quarter: 2025Q3

REPORT INFORMATION
  Report Type: Spontaneous
  Country: US (occurrence: US)
  Receive Date: 20250212
  Receipt Date: 20250718
  Transmission Date: 20251020
  Serious: No
  Sender: LUNDBECK
  Company Number: US-LUNDBECK-DKLU4010594

PATIENT
  Age: 31 Year
  Sex: Female
  Weight: 88.042 kg

DRUGS (6)
  1. NORTHERA [Suspect]
     Active Substance: DROXIDOPA
     Indication: Illness
     Dosage: 100 MILLIGRAM
     Route: 048
     Dates: start: 202206
  2. NORTHERA [Suspect]
     Active Substance: DROXIDOPA
     Dosage: 200 MILLIGRAM
     Route: 048
     Dates: start: 20220906
  3. NORTHERA [Suspect]
     Active Substance: DROXIDOPA
     Dosage: 300 MILLIGRAM
     Route: 048
  4. FEXOFENADINE HYDROCHLORIDE [Concomitant]
     Active Substance: FEXOFENADINE HYDROCHLORIDE
     Indication: Product used for unknown indication
     Route: 048
  5. TOPIRAMATE [Concomitant]
     Active Substance: TOPIRAMATE
     Indication: Product used for unknown indication
     Route: 048
  6. VITAMIN C [Concomitant]
     Active Substance: ASCORBIC ACID
     Indication: Product used for unknown indication

REACTIONS (3)
  - Presyncope [Recovering/Resolving]
  - Chest pain [Recovering/Resolving]
  - Malaise [Recovering/Resolving]
